FAERS Safety Report 14326027 (Version 4)
Quarter: 2018Q2

REPORT INFORMATION
  Report Type: Spontaneous
  Country: PL (occurrence: PL)
  Receive Date: 20171226
  Receipt Date: 20180615
  Transmission Date: 20180711
  Serious: Yes (Death, Life-Threatening)
  Sender: FDA-Public Use
  Company Number: PL-ASTRAZENECA-2017SF31363

PATIENT
  Sex: Female

DRUGS (2)
  1. TRITACE [Concomitant]
     Active Substance: RAMIPRIL
  2. IRESSA [Suspect]
     Active Substance: GEFITINIB
     Indication: LUNG CARCINOMA CELL TYPE UNSPECIFIED STAGE IV
     Dosage: 1.0DF ONCE/SINGLE ADMINISTRATION
     Route: 048
     Dates: start: 20171002

REACTIONS (2)
  - Pulmonary embolism [Fatal]
  - Cardio-respiratory arrest [Fatal]
